FAERS Safety Report 14193178 (Version 1)
Quarter: 2017Q4

REPORT INFORMATION
  Report Type: Spontaneous
  Country: US (occurrence: US)
  Receive Date: 20171115
  Receipt Date: 20171115
  Transmission Date: 20180321
  Serious: No
  Sender: FDA-Public Use
  Company Number: US-BAUSCH-BL-2016-028569

PATIENT
  Age: 65 Year

DRUGS (1)
  1. XENAZINE [Suspect]
     Active Substance: TETRABENAZINE
     Indication: DYSKINESIA
     Route: 065

REACTIONS (3)
  - Drug dose omission [Unknown]
  - Off label use [Unknown]
  - Dyskinesia [Unknown]
